FAERS Safety Report 24779119 (Version 1)
Quarter: 2024Q4

REPORT INFORMATION
  Report Type: Spontaneous
  Country: IT (occurrence: IT)
  Receive Date: 20241226
  Receipt Date: 20241226
  Transmission Date: 20250115
  Serious: Yes (Life-Threatening, Hospitalization, Other)
  Sender: MYLAN
  Company Number: IT-MYLANLABS-2024M1114970

PATIENT
  Age: 13 Year
  Sex: Female

DRUGS (23)
  1. PREDNISONE [Suspect]
     Active Substance: PREDNISONE
     Indication: Lymphocytic leukaemia
     Dosage: UNK (PREPHASE TREATMENT)
     Route: 042
  2. PREDNISONE [Suspect]
     Active Substance: PREDNISONE
     Dosage: UNK, INDUCTION PHASE TREATMENT
     Route: 042
  3. METHOTREXATE [Suspect]
     Active Substance: METHOTREXATE
     Indication: Lymphocytic leukaemia
     Dosage: UNK (PREPHASE TREATMENT)
     Route: 037
  4. METHOTREXATE [Suspect]
     Active Substance: METHOTREXATE
     Dosage: UNK (INDUCTION PHASE TREATMENT)
     Route: 037
  5. METHOTREXATE [Suspect]
     Active Substance: METHOTREXATE
     Dosage: UNK (CONSOLIDATION PHASE TREATMENT)
     Route: 037
  6. METFORMIN [Suspect]
     Active Substance: METFORMIN HYDROCHLORIDE
     Indication: Acquired generalised lipodystrophy
     Dosage: UNK
     Route: 065
  7. METFORMIN [Suspect]
     Active Substance: METFORMIN HYDROCHLORIDE
     Indication: Diabetes mellitus
  8. ASPIRIN [Suspect]
     Active Substance: ASPIRIN
     Indication: Product used for unknown indication
     Dosage: UNK
     Route: 065
  9. FENOFIBRATE [Suspect]
     Active Substance: FENOFIBRATE
     Indication: Hypertriglyceridaemia
     Dosage: UNK
     Route: 065
  10. VINCRISTINE [Suspect]
     Active Substance: VINCRISTINE
     Indication: Lymphocytic leukaemia
     Dosage: UNK (INDUCTION PHASE TREATMENT)
     Route: 042
  11. DAUNORUBICIN [Suspect]
     Active Substance: DAUNORUBICIN
     Indication: Lymphocytic leukaemia
     Dosage: UNK (INDUCTION PHASE TREATMENT)
     Route: 042
  12. ASPARAGINASE [Suspect]
     Active Substance: ASPARAGINASE
     Indication: Lymphocytic leukaemia
     Dosage: UNK (INDUCTION PHASE TREATMENT)
     Route: 030
  13. CYCLOPHOSPHAMIDE [Suspect]
     Active Substance: CYCLOPHOSPHAMIDE
     Indication: Lymphocytic leukaemia
     Dosage: UNK (CONSOLIDATION PHASE TREATMENT)
     Route: 042
  14. MERCAPTOPURINE [Suspect]
     Active Substance: MERCAPTOPURINE
     Indication: Lymphocytic leukaemia
     Dosage: UNK (CONSOLIDATION PHASE TREATMENT)
     Route: 048
  15. CYTARABINE [Suspect]
     Active Substance: CYTARABINE
     Indication: Lymphocytic leukaemia
     Dosage: UNK (CONSOLIDATION PHASE TREATMENT)
     Route: 042
  16. INSULIN GLARGINE [Suspect]
     Active Substance: INSULIN GLARGINE
     Indication: Acquired generalised lipodystrophy
     Dosage: 14 INTERNATIONAL UNIT, QD
     Route: 065
  17. INSULIN GLARGINE [Suspect]
     Active Substance: INSULIN GLARGINE
     Indication: Diabetes mellitus
  18. INSULIN LISPRO [Suspect]
     Active Substance: INSULIN LISPRO
     Indication: Acquired generalised lipodystrophy
     Dosage: 36 INTERNATIONAL UNIT, QD
     Route: 065
  19. INSULIN LISPRO [Suspect]
     Active Substance: INSULIN LISPRO
     Indication: Diabetes mellitus
  20. SEMAGLUTIDE [Suspect]
     Active Substance: SEMAGLUTIDE
     Indication: Acquired generalised lipodystrophy
     Dosage: 0.25 MILLIGRAM, QW
     Route: 065
  21. SEMAGLUTIDE [Suspect]
     Active Substance: SEMAGLUTIDE
     Indication: Diabetes mellitus
  22. LEVOTHYROXINE [Suspect]
     Active Substance: LEVOTHYROXINE
     Indication: Product used for unknown indication
     Dosage: UNK
     Route: 065
  23. PROGESTERONE [Suspect]
     Active Substance: PROGESTERONE
     Indication: Product used for unknown indication
     Dosage: UNK
     Route: 065

REACTIONS (3)
  - Left ventricular dysfunction [Recovered/Resolved]
  - Drug ineffective [Unknown]
  - Maternal exposure during pregnancy [Recovered/Resolved]
